FAERS Safety Report 16940490 (Version 1)
Quarter: 2019Q4

REPORT INFORMATION
  Report Type: Spontaneous
  Country: US (occurrence: US)
  Receive Date: 20190828
  Receipt Date: 20190828
  Transmission Date: 20200122
  Serious: No
  Sender: FDA-Public Use
  Company Number: None

PATIENT
  Age: 15 Year
  Sex: Male
  Weight: 43 kg

DRUGS (1)
  1. ONCASPAR [Suspect]
     Active Substance: PEGASPARGASE
     Indication: LEUKAEMIA
     Dates: start: 20190813, end: 20190813

REACTIONS (3)
  - Unevaluable event [None]
  - Product quality issue [None]
  - Laboratory test abnormal [None]

NARRATIVE: CASE EVENT DATE: 20190813
